FAERS Safety Report 23231412 (Version 1)
Quarter: 2023Q4

REPORT INFORMATION
  Report Type: Spontaneous
  Country: US (occurrence: US)
  Receive Date: 20231127
  Receipt Date: 20231127
  Transmission Date: 20240109
  Serious: No
  Sender: FDA-Public Use
  Company Number: US-AVADEL CNS PHARMACEUTICALS, LLC-2023AVA00272

PATIENT
  Sex: Female

DRUGS (16)
  1. LUMRYZ [Suspect]
     Active Substance: SODIUM OXYBATE
     Indication: Narcolepsy
     Dosage: 9 G, 1X/DAY, NIGHTLY
     Dates: start: 20230929
  2. LUMRYZ [Suspect]
     Active Substance: SODIUM OXYBATE
     Indication: Cataplexy
  3. LUMRYZ [Suspect]
     Active Substance: SODIUM OXYBATE
     Indication: Narcolepsy
     Dosage: 7.5 G
     Dates: start: 2023, end: 2023
  4. LUMRYZ [Suspect]
     Active Substance: SODIUM OXYBATE
     Indication: Cataplexy
  5. ADDERALL [Concomitant]
     Active Substance: AMPHETAMINE ASPARTATE\AMPHETAMINE SULFATE\DEXTROAMPHETAMINE SACCHARATE\DEXTROAMPHETAMINE SULFATE
     Dosage: 30 MG, 2X/DAY
  6. KEPPRA [Concomitant]
     Active Substance: LEVETIRACETAM
     Dosage: 250 MG, 2X/DAY
  7. CLARITIN [Concomitant]
     Active Substance: LORATADINE
     Dosage: 10 MG, 1X/DAY
  8. MOBIC [Concomitant]
     Active Substance: MELOXICAM
     Dosage: 15 MG, 1X/DAY
  9. METFORMIN [Concomitant]
     Active Substance: METFORMIN HYDROCHLORIDE
     Dosage: 500 MG, 1X/DAY
  10. METOPROLOL SUCCINATE [Concomitant]
     Active Substance: METOPROLOL SUCCINATE
     Dosage: 50 MG, 2X/DAY
  11. OZEMPIC [Concomitant]
     Active Substance: SEMAGLUTIDE
     Dosage: 2 MG, 1X/WEEK
  12. REQUIP [Concomitant]
     Active Substance: ROPINIROLE HYDROCHLORIDE
     Dosage: 1 MG, 2X/DAY
  13. ZOCOR [Concomitant]
     Active Substance: SIMVASTATIN
     Dosage: 40 MG, 1X/DAY
  14. DIOVAN [Concomitant]
     Active Substance: VALSARTAN
     Dosage: 160 MG, 1X/DAY
  15. ZONEGRAN [Concomitant]
     Active Substance: ZONISAMIDE
     Dosage: 100 MG, 1X/DAY
  16. VITAMIN D NOS [Concomitant]
     Active Substance: VITAMIN D NOS

REACTIONS (4)
  - Middle insomnia [Recovering/Resolving]
  - Nocturia [Not Recovered/Not Resolved]
  - Dizziness [Recovered/Resolved]
  - Somnolence [Not Recovered/Not Resolved]

NARRATIVE: CASE EVENT DATE: 20230101
